FAERS Safety Report 9434857 (Version 1)
Quarter: 2013Q3

REPORT INFORMATION
  Report Type: Spontaneous
  Country: JP (occurrence: JP)
  Receive Date: 20130801
  Receipt Date: 20130801
  Transmission Date: 20140515
  Serious: Yes (Hospitalization)
  Sender: FDA-Public Use
  Company Number: JP-B.I. PHARMACEUTICALS,INC./RIDGEFIELD-2013-BI-22374NB

PATIENT
  Age: 80 Year
  Sex: Male

DRUGS (8)
  1. PRAZAXA [Suspect]
     Dosage: 220 MG
     Route: 048
  2. SYMMETREL [Concomitant]
     Route: 065
  3. AMARYL [Concomitant]
     Route: 065
  4. LASIX [Concomitant]
     Route: 065
  5. GLACTIV [Concomitant]
     Route: 065
  6. DIOVAN [Concomitant]
     Route: 065
  7. MAINTATE [Concomitant]
     Dosage: 2.5 MG
     Route: 065
  8. OPALMON [Concomitant]
     Route: 065

REACTIONS (2)
  - Embolic stroke [Unknown]
  - Drug ineffective [Unknown]
